FAERS Safety Report 6306210-0 (Version None)
Quarter: 2009Q3

REPORT INFORMATION
  Report Type: 
  Country: None (occurrence: None)
  Receive Date: 20090812
  Receipt Date: 20090722
  Transmission Date: 20100115
  Serious: No
  Sender: FDA-Public Use
  Company Number: US-BAYER-200929172NA

PATIENT
  Age: 29 Year
  Sex: Female
  Weight: 54 kg

DRUGS (3)
  1. ULTRAVIST 300 [Suspect]
     Indication: COMPUTERISED TOMOGRAM ABDOMEN
     Dosage: TOTAL DAILY DOSE: 80 ML  UNIT DOSE: 200 ML
     Route: 042
     Dates: start: 20090722, end: 20090722
  2. ORAL CONTRAST [Concomitant]
     Route: 048
     Dates: start: 20090722, end: 20090722
  3. IMITREX [Concomitant]

REACTIONS (1)
  - URTICARIA [None]
